FAERS Safety Report 24184724 (Version 2)
Quarter: 2025Q2

REPORT INFORMATION
  Report Type: Spontaneous
  Country: CZ (occurrence: CZ)
  Receive Date: 20240807
  Receipt Date: 20250620
  Transmission Date: 20250717
  Serious: Yes (Hospitalization, Other)
  Sender: NOVARTIS
  Company Number: CZ-TEVA-VS-3227234

PATIENT
  Age: 42 Year
  Sex: Male

DRUGS (1)
  1. CYCLOSPORINE [Suspect]
     Active Substance: CYCLOSPORINE
     Indication: Dermatitis atopic
     Dosage: 4 MG/KG, QD
     Route: 065

REACTIONS (2)
  - Respiratory tract infection [Unknown]
  - Drug ineffective [Unknown]
